FAERS Safety Report 10117294 (Version 2)
Quarter: 2014Q2

REPORT INFORMATION
  Report Type: Spontaneous
  Country: US (occurrence: US)
  Receive Date: 20140425
  Receipt Date: 20140425
  Transmission Date: 20141212
  Serious: Yes (Other)
  Sender: FDA-Public Use
  Company Number: US-BMSGILMSD-2012-0063497

PATIENT
  Sex: Male
  Weight: 72.56 kg

DRUGS (9)
  1. ATRIPLA [Suspect]
     Indication: PRODUCT USED FOR UNKNOWN INDICATION
     Dosage: UNK
     Route: 048
     Dates: start: 2007, end: 201207
  2. SEROQUEL [Concomitant]
  3. FLUCONAZOLE [Concomitant]
  4. BACTRIM DS [Concomitant]
  5. NEXIUM                             /01479302/ [Concomitant]
  6. DSS [Concomitant]
  7. NAPROXEN [Concomitant]
  8. AZITHROMYCIN [Concomitant]
  9. ANTABUSE [Concomitant]

REACTIONS (1)
  - Fanconi syndrome acquired [Recovered/Resolved]
